FAERS Safety Report 5561905-1 (Version None)
Quarter: 2007Q4

REPORT INFORMATION
  Report Type: 
  Country: None (occurrence: None)
  Receive Date: 20071215
  Receipt Date: 20071004
  Transmission Date: 20080405
  Serious: No
  Sender: FDA-Public Use
  Company Number: US-AMGEN-US241738

PATIENT
  Sex: Male

DRUGS (1)
  1. ENBREL [Suspect]
     Indication: PSORIASIS
     Route: 058
     Dates: start: 20050523

REACTIONS (5)
  - MALAISE [None]
  - PSORIASIS [None]
  - REFLUX OESOPHAGITIS [None]
  - SINUSITIS [None]
  - VERTIGO [None]
